FAERS Safety Report 22918081 (Version 3)
Quarter: 2023Q4

REPORT INFORMATION
  Report Type: Other
  Country: US (occurrence: US)
  Receive Date: 20230907
  Receipt Date: 20231102
  Transmission Date: 20240110
  Serious: Yes (Other)
  Sender: FDA-Public Use
  Company Number: US-TRAVERE-2023TVT00228

PATIENT
  Age: 29 Year
  Sex: Female

DRUGS (3)
  1. FILSPARI [Suspect]
     Active Substance: SPARSENTAN
     Indication: IgA nephropathy
     Route: 048
  2. FILSPARI [Suspect]
     Active Substance: SPARSENTAN
     Indication: Chronic kidney disease
     Route: 048
  3. FILSPARI [Suspect]
     Active Substance: SPARSENTAN
     Indication: Proteinuria

REACTIONS (17)
  - Loss of consciousness [Unknown]
  - Muscle spasms [Unknown]
  - Nausea [Unknown]
  - Vomiting [Unknown]
  - Hypoaesthesia [Unknown]
  - Fatigue [Unknown]
  - Injury [Unknown]
  - Diarrhoea [Unknown]
  - Fall [Unknown]
  - Dizziness [Unknown]
  - Dysstasia [Unknown]
  - Pain [Unknown]
  - Blood pressure decreased [Unknown]
  - Limb discomfort [Unknown]
  - Protein total decreased [Unknown]
  - Product dose omission issue [Unknown]
  - Somnolence [Unknown]

NARRATIVE: CASE EVENT DATE: 20230609
